FAERS Safety Report 7337473 (Version 2)
Quarter: 2013Q1

REPORT INFORMATION
  Report Type: Spontaneous
  Country: US (occurrence: US)
  Receive Date: 20100330
  Receipt Date: 20130222
  Transmission Date: 20140127
  Serious: No
  Sender: FDA-Public Use
  Company Number: US-BIOGENIDEC-2010BI009414

PATIENT
  Age: 54 Year
  Sex: Male

DRUGS (1)
  1. TYSABRI [Suspect]
     Indication: MULTIPLE SCLEROSIS
     Route: 042
     Dates: start: 20070606

REACTIONS (3)
  - Hypoaesthesia [Not Recovered/Not Resolved]
  - Nasopharyngitis [Recovered/Resolved]
  - Gait disturbance [Not Recovered/Not Resolved]
